FAERS Safety Report 8453534-7 (Version None)
Quarter: 2012Q2

REPORT INFORMATION
  Report Type: 
  Country: None (occurrence: None)
  Receive Date: 20120620
  Receipt Date: 20120522
  Transmission Date: 20120825
  Serious: No
  Sender: FDA-Public Use
  Company Number: US-VERTEX PHARMACEUTICALS INC.-AE-2012-007581

PATIENT
  Sex: Female
  Weight: 72.64 kg

DRUGS (4)
  1. INCIVEK [Suspect]
     Indication: HEPATITIS C
     Route: 048
     Dates: start: 20111101, end: 20120201
  2. SYNTHROID [Concomitant]
     Indication: HYPOTHYROIDISM
  3. PEGASYS [Concomitant]
     Indication: HEPATITIS C
     Route: 058
     Dates: start: 20111101, end: 20120201
  4. RIBAVIRIN [Concomitant]
     Indication: HEPATITIS C
     Route: 048
     Dates: start: 20111101, end: 20120201

REACTIONS (5)
  - MOOD SWINGS [None]
  - FATIGUE [None]
  - NAUSEA [None]
  - IRRITABILITY [None]
  - ANAEMIA [None]
